FAERS Safety Report 16918708 (Version 2)
Quarter: 2019Q4

REPORT INFORMATION
  Report Type: Other
  Country: AU (occurrence: AU)
  Receive Date: 20191015
  Receipt Date: 20191220
  Transmission Date: 20200122
  Serious: Yes (Other)
  Sender: FDA-Public Use
  Company Number: AU-SERVIER-S19010500

PATIENT

DRUGS (1)
  1. PEGASPARGASE [Suspect]
     Active Substance: PEGASPARGASE
     Indication: PRODUCT USED FOR UNKNOWN INDICATION
     Dosage: UNK
     Route: 065

REACTIONS (6)
  - Tachycardia [Recovered/Resolved]
  - Abdominal pain [Unknown]
  - Cough [Recovered/Resolved]
  - Crying [Recovered/Resolved]
  - Oxygen saturation decreased [Recovered/Resolved]
  - Cyanosis [Recovered/Resolved]

NARRATIVE: CASE EVENT DATE: 2019
